FAERS Safety Report 9686392 (Version 2)
Quarter: 2014Q1

REPORT INFORMATION
  Report Type: Spontaneous
  Country: US (occurrence: US)
  Receive Date: 20131113
  Receipt Date: 20140203
  Transmission Date: 20141002
  Serious: Yes (Other)
  Sender: FDA-Public Use
  Company Number: US-FRI-1000050981

PATIENT
  Age: 43 Year
  Sex: Female

DRUGS (3)
  1. VIIBRYD [Suspect]
     Indication: DEPRESSION
     Dosage: 10 MG
  2. VIIBRYD [Suspect]
     Indication: ANXIETY
     Dosage: 20 MG
  3. VIIBRYD [Suspect]
     Dosage: 40 MG

REACTIONS (4)
  - Psychotic disorder [Unknown]
  - Insomnia [Unknown]
  - Head banging [Unknown]
  - Off label use [Recovered/Resolved]
